FAERS Safety Report 18600612 (Version 1)
Quarter: 2020Q4

REPORT INFORMATION
  Report Type: Spontaneous
  Country: CN (occurrence: CN)
  Receive Date: 20201210
  Receipt Date: 20201210
  Transmission Date: 20210114
  Serious: Yes (Hospitalization)
  Sender: FDA-Public Use
  Company Number: CN-ELI_LILLY_AND_COMPANY-CN202012001758

PATIENT
  Age: 84 Year
  Sex: Male
  Weight: 63 kg

DRUGS (2)
  1. PIOGLITAZONE HYDROCHLORIDE. [Suspect]
     Active Substance: PIOGLITAZONE HYDROCHLORIDE
     Indication: HYPERGLYCAEMIA
     Dosage: 80 MG, DAILY
     Route: 048
     Dates: start: 20201123, end: 20201125
  2. HUMALOG MIX75/25 [Suspect]
     Active Substance: INSULIN LISPRO
     Indication: HYPERGLYCAEMIA
     Dosage: 14 INTERNATIONAL UNIT, DAILY
     Route: 058
     Dates: start: 20201123, end: 20201125

REACTIONS (3)
  - Decreased appetite [Unknown]
  - Hypoglycaemia [Recovered/Resolved]
  - Coronary artery disease [Unknown]

NARRATIVE: CASE EVENT DATE: 20201125
